FAERS Safety Report 6018346-2 (Version None)
Quarter: 2008Q4

REPORT INFORMATION
  Report Type: 
  Country: None (occurrence: None)
  Receive Date: 20081217
  Receipt Date: 20080904
  Transmission Date: 20090506
  Serious: No
  Sender: FDA-Public Use
  Company Number: US-WYE-H05895008

PATIENT
  Age: 75 Year
  Sex: Male
  Weight: 63.11 kg

DRUGS (5)
  1. TORISEL [Suspect]
     Indication: RENAL CELL CARCINOMA
     Dosage: INTRAVENOUS
     Route: 042
     Dates: start: 20080225, end: 20080923
  2. FERROUS SULFATE TAB [Concomitant]
  3. LEVOTHYROXINE SODIUM [Concomitant]
  4. ALPRAZOLAM [Concomitant]
  5. VITAMIN B12 [Concomitant]

REACTIONS (2)
  - HYPOAESTHESIA [None]
  - PARAESTHESIA [None]
